FAERS Safety Report 6340966-6 (Version None)
Quarter: 2009Q3

REPORT INFORMATION
  Report Type: 
  Country: None (occurrence: None)
  Receive Date: 20090904
  Receipt Date: 20090804
  Transmission Date: 20100115
  Serious: No
  Sender: FDA-Public Use
  Company Number: US-BAYER-200913051BCC

PATIENT
  Age: 14 Year
  Sex: Male
  Weight: 70 kg

DRUGS (2)
  1. ALEVE (CAPLET) [Suspect]
     Indication: HEADACHE
     Dosage: TOTAL DAILY DOSE: 220 MG  UNIT DOSE: 220 MG
     Route: 048
  2. MYLANTA [Suspect]
     Indication: ABDOMINAL PAIN UPPER
     Dosage: TOOK 4 TEA SPOONS
     Route: 048

REACTIONS (2)
  - PRURITUS [None]
  - URTICARIA [None]
